FAERS Safety Report 7988004-3 (Version None)
Quarter: 2011Q4

REPORT INFORMATION
  Report Type: 
  Country: None (occurrence: None)
  Receive Date: 20111216
  Receipt Date: 20101123
  Transmission Date: 20120403
  Serious: No
  Sender: FDA-Public Use
  Company Number: US-BRISTOL-MYERS SQUIBB COMPANY-15402431

PATIENT
  Age: 2 Decade
  Sex: Female

DRUGS (3)
  1. XANAX [Concomitant]
  2. LEXAPRO [Concomitant]
  3. ABILIFY [Suspect]

REACTIONS (2)
  - FEELING JITTERY [None]
  - FEELING ABNORMAL [None]
